FAERS Safety Report 18555789 (Version 4)
Quarter: 2021Q3

REPORT INFORMATION
  Report Type: Report from Study
  Country: US (occurrence: US)
  Receive Date: 20201127
  Receipt Date: 20210910
  Transmission Date: 20211014
  Serious: No
  Sender: FDA-Public Use
  Company Number: NVSC2020US309024

PATIENT
  Age: 18 Year
  Sex: Female

DRUGS (1)
  1. KESIMPTA [Suspect]
     Active Substance: OFATUMUMAB
     Indication: RELAPSING-REMITTING MULTIPLE SCLEROSIS
     Dosage: UNK (ONCE A MONTH)
     Route: 058
     Dates: start: 20200930

REACTIONS (7)
  - Temperature intolerance [Unknown]
  - Injection site bruising [Unknown]
  - Hypoaesthesia [Unknown]
  - Wrong technique in device usage process [Unknown]
  - Balance disorder [Unknown]
  - Injection site haemorrhage [Unknown]
  - Tremor [Unknown]

NARRATIVE: CASE EVENT DATE: 20030725
